FAERS Safety Report 9357407 (Version 3)
Quarter: 2013Q3

REPORT INFORMATION
  Report Type: Report from Study
  Country: CA (occurrence: CA)
  Receive Date: 20130620
  Receipt Date: 20130702
  Transmission Date: 20140515
  Serious: Yes (Other)
  Sender: FDA-Public Use
  Company Number: CA-ROCHE-1189639

PATIENT
  Age: 42 Year
  Sex: Female
  Weight: 80 kg

DRUGS (11)
  1. ACTEMRA [Suspect]
     Indication: RHEUMATOID ARTHRITIS
     Route: 042
     Dates: start: 20121121, end: 20130205
  2. ACTEMRA [Suspect]
     Route: 042
     Dates: start: 20121219
  3. RITUXAN [Suspect]
     Indication: RHEUMATOID ARTHRITIS
     Route: 042
     Dates: start: 20130417
  4. ARAVA [Concomitant]
  5. LYRICA [Concomitant]
  6. OXYCOCET [Concomitant]
  7. BENADRYL (CANADA) [Concomitant]
     Indication: PREMEDICATION
     Route: 048
     Dates: start: 20130417
  8. TYLENOL [Concomitant]
     Indication: PREMEDICATION
     Route: 048
     Dates: start: 20130417
  9. SPIRIVA [Concomitant]
  10. VENTOLIN [Concomitant]
  11. METHYLPREDNISOLONE [Concomitant]
     Route: 042
     Dates: start: 20130417

REACTIONS (4)
  - Biliary dilatation [Unknown]
  - Epigastric discomfort [Unknown]
  - Infusion related reaction [Recovered/Resolved]
  - Abdominal pain [Not Recovered/Not Resolved]
